FAERS Safety Report 14746772 (Version 1)
Quarter: 2018Q2

REPORT INFORMATION
  Report Type: Spontaneous
  Country: PL (occurrence: PL)
  Receive Date: 20180411
  Receipt Date: 20180411
  Transmission Date: 20180711
  Serious: Yes (Other)
  Sender: FDA-Public Use
  Company Number: PL-CELGENEUS-POL-20180309910

PATIENT
  Age: 66 Year
  Sex: Male

DRUGS (7)
  1. ONDANSETRON [Concomitant]
     Active Substance: ONDANSETRON
     Indication: PANCREATIC CARCINOMA
     Route: 041
  2. ABRAXANE [Suspect]
     Active Substance: PACLITAXEL
     Indication: PANCREATIC CARCINOMA
     Route: 041
     Dates: start: 20170711, end: 20171205
  3. GEMCITABINE [Suspect]
     Active Substance: GEMCITABINE\GEMCITABINE HYDROCHLORIDE
     Indication: PANCREATIC CARCINOMA
     Route: 041
     Dates: start: 20170711, end: 20171205
  4. FOLFOX [Concomitant]
     Active Substance: FLUOROURACIL\LEUCOVORIN CALCIUM\OXALIPLATIN
     Indication: PANCREATIC CARCINOMA
     Route: 065
     Dates: start: 20180103
  5. DEXAVEN [Concomitant]
     Active Substance: DEXAMETHASONE
     Indication: PANCREATIC CARCINOMA
     Route: 041
  6. CLEMASTIN [Concomitant]
     Active Substance: CLEMASTINE
     Indication: PANCREATIC CARCINOMA
     Route: 041
  7. TRAMAL [Concomitant]
     Active Substance: TRAMADOL
     Indication: PAIN
     Route: 065

REACTIONS (5)
  - Thrombocytopenia [Unknown]
  - Anaemia [Unknown]
  - Neutropenia [Unknown]
  - Pancreatic carcinoma [Unknown]
  - Hepatotoxicity [Unknown]
